FAERS Safety Report 6550155-8 (Version None)
Quarter: 2010Q1

REPORT INFORMATION
  Report Type: 
  Country: None (occurrence: None)
  Receive Date: 20100125
  Receipt Date: 20100119
  Transmission Date: 20100710
  Serious: Yes (Disabling)
  Sender: FDA-Public Use
  Company Number: US-MERCK-0805USA02814

PATIENT
  Age: 50 Year
  Sex: Female

DRUGS (7)
  1. FOSAMAX [Suspect]
     Indication: PROPHYLAXIS
     Route: 048
     Dates: start: 20021201
  2. FOSAMAX [Suspect]
     Route: 048
     Dates: start: 20030201, end: 20070501
  3. FOSAMAX [Suspect]
     Route: 048
     Dates: start: 20020101
  4. LIPITOR [Concomitant]
     Indication: DYSLIPIDAEMIA
     Route: 065
     Dates: start: 20020101, end: 20070101
  5. NORVASC [Concomitant]
     Indication: HYPERTENSION
     Route: 065
     Dates: start: 20020101, end: 20060101
  6. FLONASE [Concomitant]
     Indication: ASTHMA
     Route: 065
     Dates: start: 20020101
  7. ZITHROMAX [Concomitant]
     Indication: UPPER RESPIRATORY TRACT INFECTION
     Route: 065
     Dates: start: 20020101, end: 20060101

REACTIONS (15)
  - BONE DENSITY DECREASED [None]
  - BONE DISORDER [None]
  - CARDIAC DISORDER [None]
  - DENTAL CARIES [None]
  - GINGIVAL DISORDER [None]
  - HYPERSENSITIVITY [None]
  - INFECTION [None]
  - JAW DISORDER [None]
  - LOOSE TOOTH [None]
  - ORAL INFECTION [None]
  - OSTEOMYELITIS [None]
  - OSTEONECROSIS [None]
  - PAIN [None]
  - PERIODONTAL DISEASE [None]
  - TOOTH DISORDER [None]
